FAERS Safety Report 6678860-3 (Version None)
Quarter: 2010Q2

REPORT INFORMATION
  Report Type: 
  Country: None (occurrence: None)
  Receive Date: 20100406
  Receipt Date: 20090520
  Transmission Date: 20101027
  Serious: Yes (Other)
  Sender: FDA-Public Use
  Company Number: 2009BH008829

PATIENT
  Age: 71 Year
  Sex: Female

DRUGS (1)
  1. ROBINUL [Suspect]
     Indication: APTYALISM
     Dates: start: 20090427

REACTIONS (6)
  - ANAPHYLACTOID REACTION [None]
  - APHONIA [None]
  - COUGH [None]
  - DYSPHAGIA [None]
  - IMPAIRED WORK ABILITY [None]
  - OROPHARYNGEAL PAIN [None]
